FAERS Safety Report 5238502-0 (Version None)
Quarter: 2007Q1

REPORT INFORMATION
  Report Type: 
  Country: None (occurrence: None)
  Receive Date: 20070215
  Receipt Date: 20070205
  Transmission Date: 20070707
  Serious: Yes (Hospitalization)
  Sender: FDA-Public Use
  Company Number: HQWYE522205FEB07

PATIENT
  Age: 61 Year
  Sex: Female

DRUGS (4)
  1. PROPRANOLOL HYDROCHLORIDE [Suspect]
     Indication: INTENTION TREMOR
     Route: 065
  2. CAPTOPRIL [Concomitant]
     Route: 065
  3. FUROSEMIDE [Concomitant]
     Dosage: NOT PROVIDED
     Route: 065
  4. VERAPAMIL [Interacting]
     Route: 065

REACTIONS (3)
  - DRUG INTERACTION [None]
  - NODAL RHYTHM [None]
  - SINUS BRADYCARDIA [None]
